FAERS Safety Report 4823020-1 (Version None)
Quarter: 2005Q4

REPORT INFORMATION
  Report Type: 
  Country: None (occurrence: None)
  Receive Date: 20051107
  Receipt Date: 20051021
  Transmission Date: 20060501
  Serious: No
  Sender: FDA-Public Use
  Company Number: 2005S1010772

PATIENT
  Sex: Male

DRUGS (3)
  1. FLURBIPROFEN [Suspect]
     Dosage: UNKNOWN; X1; TRANS
     Route: 062
  2. DYPHYLLINE GG (QUALITEST) [Suspect]
     Dosage: UNKNOWN; X1; TRANS
     Route: 062
  3. SULFAMETHAZOLE AND TRIMETHOPRIM DS (URL) [Suspect]
     Dosage: UNKNOWN; X1; TRANS
     Route: 062

REACTIONS (4)
  - CAESAREAN SECTION [None]
  - DRUG EXPOSURE DURING PREGNANCY [None]
  - FOETAL HEART RATE ABNORMAL [None]
  - INTRA-UTERINE DEATH [None]
